FAERS Safety Report 6361579-6 (Version None)
Quarter: 2009Q3

REPORT INFORMATION
  Report Type: 
  Country: None (occurrence: None)
  Receive Date: 20090915
  Receipt Date: 20090915
  Transmission Date: 20100115
  Serious: Yes (Hospitalization)
  Sender: FDA-Public Use
  Company Number: None

PATIENT
  Age: 50 Year
  Sex: Male
  Weight: 111.1313 kg

DRUGS (2)
  1. RIBAVIRIN [Suspect]
     Dates: start: 20090402, end: 20090901
  2. PEGASYS [Suspect]
     Dates: start: 20090402, end: 20090901

REACTIONS (1)
  - THROMBOCYTOPENIA [None]
